FAERS Safety Report 9727073 (Version 2)
Quarter: 2014Q1

REPORT INFORMATION
  Report Type: Spontaneous
  Country: RU (occurrence: RU)
  Receive Date: 20131203
  Receipt Date: 20140117
  Transmission Date: 20141002
  Serious: Yes (Hospitalization, Other)
  Sender: FDA-Public Use
  Company Number: RU-BAYER-2013-144830

PATIENT
  Age: 17 Year
  Sex: Female

DRUGS (1)
  1. YAZ [Suspect]
     Indication: MENSTRUAL DISORDER
     Dosage: UNK
     Route: 048
     Dates: end: 201305

REACTIONS (20)
  - Deep vein thrombosis [None]
  - Deep vein thrombosis [None]
  - Myalgia [None]
  - Pelvic venous thrombosis [None]
  - Vena cava thrombosis [None]
  - Pulmonary artery thrombosis [None]
  - Dyspnoea [None]
  - Chest pain [None]
  - Asthenia [None]
  - Dyspnoea [None]
  - Respiratory failure [None]
  - Pallor [None]
  - Respiratory rate increased [None]
  - Pulmonary hypertension [None]
  - Heart rate increased [None]
  - General physical condition abnormal [None]
  - Tricuspid valve incompetence [None]
  - Mitral valve incompetence [None]
  - Cyanosis [None]
  - Genital haemorrhage [None]
